FAERS Safety Report 23188470 (Version 2)
Quarter: 2023Q4

REPORT INFORMATION
  Report Type: Spontaneous
  Country: FR (occurrence: FR)
  Receive Date: 20231115
  Receipt Date: 20231206
  Transmission Date: 20240110
  Serious: Yes (Death, Hospitalization, Other)
  Sender: FDA-Public Use
  Company Number: FR-AFSSAPS-LY2023001031

PATIENT
  Age: 71 Year
  Sex: Female
  Weight: 82 kg

DRUGS (7)
  1. KEYTRUDA [Suspect]
     Active Substance: PEMBROLIZUMAB
     Indication: Transitional cell cancer of renal pelvis and ureter metastatic
     Dosage: 200 MILLIGRAM, CYCLICAL (3 TREATMENTS)
     Route: 042
     Dates: start: 20230210, end: 20230421
  2. PADCEV [Suspect]
     Active Substance: ENFORTUMAB VEDOTIN-EJFV
     Indication: Transitional cell cancer of renal pelvis and ureter metastatic
     Dosage: 105 MILLIGRAM, TOTAL DOSE, ONCE (C1J8)
     Route: 042
     Dates: start: 20230519
  3. PADCEV [Suspect]
     Active Substance: ENFORTUMAB VEDOTIN-EJFV
     Dosage: UNK, UNK, UNKNOWN FREQ
     Route: 065
     Dates: start: 20230526
  4. LEVOTHYROXINE SODIUM [Concomitant]
     Active Substance: LEVOTHYROXINE SODIUM
     Indication: Product used for unknown indication
     Dosage: UNK UNK, UNKNOWN FREQ.
     Route: 065
  5. ASPIRIN [Concomitant]
     Active Substance: ASPIRIN
     Indication: Product used for unknown indication
     Dosage: UNK, UNK, UNKNOWN FREQ
     Route: 065
  6. ASPIRIN [Concomitant]
     Active Substance: ASPIRIN
     Dosage: UNK UNK, UNKNOWN FREQ.
     Route: 065
  7. COVERAM [Concomitant]
     Active Substance: AMLODIPINE\PERINDOPRIL
     Indication: Product used for unknown indication
     Dosage: UNK UNK, UNKNOWN FREQ.
     Route: 065

REACTIONS (2)
  - Malignant neoplasm progression [Fatal]
  - Colitis [Unknown]

NARRATIVE: CASE EVENT DATE: 20230529
